FAERS Safety Report 24913535 (Version 1)
Quarter: 2025Q1

REPORT INFORMATION
  Report Type: Spontaneous
  Country: US (occurrence: US)
  Receive Date: 20250201
  Receipt Date: 20250201
  Transmission Date: 20250408
  Serious: Yes (Hospitalization)
  Sender: AMGEN
  Company Number: US-AMGEN-USASP2025017171

PATIENT
  Age: 81 Year
  Sex: Female

DRUGS (3)
  1. KRYSTEXXA [Suspect]
     Active Substance: PEGLOTICASE
     Indication: Gout
     Route: 040
     Dates: start: 20241219
  2. KRYSTEXXA [Suspect]
     Active Substance: PEGLOTICASE
     Route: 040
  3. KRYSTEXXA [Suspect]
     Active Substance: PEGLOTICASE
     Route: 040
     Dates: start: 20250120

REACTIONS (2)
  - Urinary tract infection [Unknown]
  - Gout [Unknown]

NARRATIVE: CASE EVENT DATE: 20250101
